FAERS Safety Report 13429296 (Version 2)
Quarter: 2017Q2

REPORT INFORMATION
  Report Type: Spontaneous
  Country: CA (occurrence: CA)
  Receive Date: 20170411
  Receipt Date: 20170504
  Transmission Date: 20170830
  Serious: Yes (Hospitalization, Other)
  Sender: FDA-Public Use
  Company Number: CA-GLAXOSMITHKLINE-A0973680A

PATIENT
  Age: 45 Year
  Sex: Female
  Weight: 72 kg

DRUGS (5)
  1. BENLYSTA [Suspect]
     Active Substance: BELIMUMAB
     Dosage: 760 MG, UNK
     Route: 042
  2. BENLYSTA [Suspect]
     Active Substance: BELIMUMAB
     Dosage: 810 MG, UNK
     Route: 042
     Dates: start: 20160613
  3. BENLYSTA [Suspect]
     Active Substance: BELIMUMAB
     Indication: SYSTEMIC LUPUS ERYTHEMATOSUS
     Dosage: 720 MG, UNK
     Route: 042
     Dates: start: 20120412
  4. BENLYSTA [Suspect]
     Active Substance: BELIMUMAB
     Dosage: 790 MG, UNK
     Route: 042
  5. BENLYSTA [Suspect]
     Active Substance: BELIMUMAB
     Dosage: 770 MG, UNK

REACTIONS (14)
  - Oropharyngeal pain [Recovered/Resolved]
  - Anxiety [Unknown]
  - Laceration [Recovering/Resolving]
  - Influenza [Recovered/Resolved]
  - Headache [Recovered/Resolved]
  - Bronchitis [Unknown]
  - Circumstance or information capable of leading to medication error [Unknown]
  - Cold sweat [Recovered/Resolved]
  - Drug ineffective [Unknown]
  - Antibiotic therapy [Unknown]
  - Sinusitis [Unknown]
  - Hospitalisation [Unknown]
  - Malaise [Unknown]
  - Stress [Unknown]

NARRATIVE: CASE EVENT DATE: 20120412
